FAERS Safety Report 19705326 (Version 2)
Quarter: 2022Q1

REPORT INFORMATION
  Report Type: Spontaneous
  Country: US (occurrence: US)
  Receive Date: 20210816
  Receipt Date: 20220118
  Transmission Date: 20220424
  Serious: Yes (Other)
  Sender: FDA-Public Use
  Company Number: US-BAYER-2021-193736

PATIENT
  Age: 25 Year
  Sex: Female
  Weight: 89 kg

DRUGS (1)
  1. MIRENA [Suspect]
     Active Substance: LEVONORGESTREL
     Indication: Contraception
     Dosage: 20?G/DAY
     Route: 015
     Dates: start: 20210422, end: 20210823

REACTIONS (2)
  - Embedded device [Recovered/Resolved]
  - Device dislocation [Recovered/Resolved]

NARRATIVE: CASE EVENT DATE: 20210604
